FAERS Safety Report 6335573-5 (Version None)
Quarter: 2009Q3

REPORT INFORMATION
  Report Type: 
  Country: None (occurrence: None)
  Receive Date: 20090831
  Receipt Date: 20090821
  Transmission Date: 20100115
  Serious: No
  Sender: FDA-Public Use
  Company Number: US-WATSON-2009-05240

PATIENT
  Sex: Male

DRUGS (2)
  1. PREDNISONE (WATSON LABORATORIES) [Suspect]
     Indication: RENAL TRANSPLANT
     Dosage: 1 TABLET, QAM
     Route: 048
     Dates: start: 20081101
  2. PREDNISONE (WATSON LABORATORIES) [Suspect]
     Dosage: 1 TABLET, DAILY TITRATED TO 5 MG DAILY
     Route: 048
     Dates: start: 20061101

REACTIONS (2)
  - BENIGN BREAST NEOPLASM [None]
  - LYMPHOEDEMA [None]
